FAERS Safety Report 18480215 (Version 2)
Quarter: 2020Q4

REPORT INFORMATION
  Report Type: Spontaneous
  Country: PT (occurrence: PT)
  Receive Date: 20201109
  Receipt Date: 20201217
  Transmission Date: 20210114
  Serious: Yes (Other)
  Sender: FDA-Public Use
  Company Number: PT-009507513-2011PRT001754

PATIENT
  Sex: Male

DRUGS (2)
  1. EMTRICITABINE (+) TENOFOVIR [Suspect]
     Active Substance: EMTRICITABINE\TENOFOVIR
     Indication: HIV INFECTION
     Dosage: UNK
     Dates: start: 201107
  2. RALTEGRAVIR POTASSIUM [Suspect]
     Active Substance: RALTEGRAVIR POTASSIUM
     Indication: HIV INFECTION
     Dosage: UNK
     Route: 048
     Dates: start: 201107

REACTIONS (7)
  - Diabetes mellitus [Unknown]
  - Trigeminal neuralgia [Unknown]
  - Erectile dysfunction [Unknown]
  - Cerebrovascular disorder [Unknown]
  - Hypertension [Unknown]
  - Gastritis [Unknown]
  - Dyslipidaemia [Unknown]
